FAERS Safety Report 11046589 (Version 3)
Quarter: 2015Q3

REPORT INFORMATION
  Report Type: Report from Study
  Country: CA (occurrence: CA)
  Receive Date: 20150420
  Receipt Date: 20150812
  Transmission Date: 20151125
  Serious: Yes (Death, Hospitalization, Other)
  Sender: FDA-Public Use
  Company Number: CA-AMGEN-CANSL2015036557

PATIENT
  Age: 89 Year
  Sex: Female
  Weight: 75 kg

DRUGS (9)
  1. PROLIA [Suspect]
     Active Substance: DENOSUMAB
     Indication: OSTEOPOROSIS
     Dosage: 60 MG, Q6MO
     Route: 058
     Dates: start: 20141114
  2. CARDIZEM [Concomitant]
     Active Substance: DILTIAZEM HYDROCHLORIDE
     Dosage: 240 MG, UNK
  3. CALTRATE                           /00944201/ [Concomitant]
  4. MIRABEGRON [Concomitant]
     Active Substance: MIRABEGRON
     Dosage: 25 MG, UNK
  5. WARFARIN [Concomitant]
     Active Substance: WARFARIN
     Indication: ABDOMINAL PAIN
  6. PARIET [Concomitant]
     Active Substance: RABEPRAZOLE SODIUM
     Dosage: 20 UNK, UNK
  7. FUROSEMIDE. [Concomitant]
     Active Substance: FUROSEMIDE
     Dosage: 20 MG, UNK
  8. WARFARIN [Concomitant]
     Active Substance: WARFARIN
     Indication: ATRIAL FIBRILLATION
     Dosage: 5 MG, UNK
  9. BISOPROLOL [Concomitant]
     Active Substance: BISOPROLOL
     Dosage: 2.5 MG, UNK

REACTIONS (15)
  - Sepsis [Fatal]
  - Pneumonia [Unknown]
  - Dyspnoea [Unknown]
  - Procedural hypotension [Unknown]
  - Abdominal pain [Unknown]
  - Lung infection [Fatal]
  - Atrial fibrillation [Unknown]
  - Upper gastrointestinal haemorrhage [Unknown]
  - Abscess intestinal [Fatal]
  - Cerebral infarction [Fatal]
  - Blood lactic acid increased [Unknown]
  - Diverticular perforation [Fatal]
  - Hypoxia [Unknown]
  - Rectal haemorrhage [Unknown]
  - Vomiting [Unknown]

NARRATIVE: CASE EVENT DATE: 2015
